FAERS Safety Report 21764125 (Version 1)
Quarter: 2022Q4

REPORT INFORMATION
  Report Type: Spontaneous
  Country: CA (occurrence: CA)
  Receive Date: 20221222
  Receipt Date: 20221222
  Transmission Date: 20230113
  Serious: Yes (Other)
  Sender: FDA-Public Use
  Company Number: CA-AUROBINDO-AUR-APL-2022-053898

PATIENT
  Age: 53 Year
  Sex: Female
  Weight: 65.7 kg

DRUGS (1)
  1. VENLAFAXINE HYDROCHLORIDE [Suspect]
     Active Substance: VENLAFAXINE HYDROCHLORIDE
     Indication: Menopausal symptoms
     Dosage: UNK (1.0 UNKNOWN)
     Route: 048

REACTIONS (2)
  - Pain [Recovered/Resolved]
  - Neuralgia [Recovered/Resolved]
